FAERS Safety Report 15518600 (Version 2)
Quarter: 2019Q1

REPORT INFORMATION
  Report Type: Spontaneous
  Country: US (occurrence: US)
  Receive Date: 20181017
  Receipt Date: 20190124
  Transmission Date: 20190417
  Serious: Yes (Other)
  Sender: FDA-Public Use
  Company Number: US-009507513-1810USA005685

PATIENT
  Sex: Male

DRUGS (1)
  1. KEYTRUDA [Suspect]
     Active Substance: PEMBROLIZUMAB
     Indication: METASTASES TO BLADDER
     Dosage: UNK
     Dates: start: 201711

REACTIONS (3)
  - Pathogen resistance [Unknown]
  - Hyperthyroidism [Recovered/Resolved]
  - Clostridium difficile infection [Not Recovered/Not Resolved]
